FAERS Safety Report 9813371 (Version 3)
Quarter: 2014Q3

REPORT INFORMATION
  Report Type: Report from Study
  Country: US (occurrence: US)
  Receive Date: 20140113
  Receipt Date: 20140812
  Transmission Date: 20150326
  Serious: Yes (Hospitalization)
  Sender: FDA-Public Use
  Company Number: US-ALEXION-A201304741

PATIENT

DRUGS (1)
  1. SOLIRIS [Suspect]
     Active Substance: ECULIZUMAB
     Indication: HAEMOLYTIC URAEMIC SYNDROME
     Dosage: UNK
     Route: 042
     Dates: start: 20131208

REACTIONS (5)
  - Fluid retention [Unknown]
  - Dizziness [Unknown]
  - Motion sickness [Unknown]
  - Depression [Unknown]
  - Hypertension [Unknown]

NARRATIVE: CASE EVENT DATE: 201312
